FAERS Safety Report 17436942 (Version 4)
Quarter: 2020Q1

REPORT INFORMATION
  Report Type: Spontaneous
  Country: US (occurrence: US)
  Receive Date: 20200219
  Receipt Date: 20200316
  Transmission Date: 20200409
  Serious: No
  Sender: FDA-Public Use
  Company Number: US-ACTELION-A-NJ2020-201559

PATIENT
  Age: 25 Year
  Sex: Female
  Weight: 68.03 kg

DRUGS (3)
  1. OPSUMIT [Suspect]
     Active Substance: MACITENTAN
     Indication: PULMONARY ARTERIAL HYPERTENSION
     Dosage: 10 MG, QD
     Route: 048
     Dates: start: 20180316
  2. REMODULIN [Suspect]
     Active Substance: TREPROSTINIL
     Indication: PRODUCT USED FOR UNKNOWN INDICATION
     Dosage: UNK
     Route: 065
     Dates: start: 20200202
  3. ADEMPAS [Concomitant]
     Active Substance: RIOCIGUAT

REACTIONS (10)
  - Hyperhidrosis [Unknown]
  - Cough [Unknown]
  - Dyspnoea [Not Recovered/Not Resolved]
  - Heart rate increased [Unknown]
  - Catheter site erythema [Unknown]
  - Catheter site pain [Unknown]
  - Anxiety [Unknown]
  - Headache [Unknown]
  - Nausea [Unknown]
  - Nasopharyngitis [Unknown]

NARRATIVE: CASE EVENT DATE: 202002
